FAERS Safety Report 6573989-2 (Version None)
Quarter: 2010Q1

REPORT INFORMATION
  Report Type: 
  Country: None (occurrence: None)
  Receive Date: 20100208
  Receipt Date: 20100202
  Transmission Date: 20100710
  Serious: Yes (Other)
  Sender: FDA-Public Use
  Company Number: US-JNJFOC-20100202507

PATIENT
  Sex: Male
  Weight: 72.58 kg

DRUGS (6)
  1. DURAGESIC-100 [Suspect]
     Indication: NECK PAIN
     Route: 062
  2. DURAGESIC-100 [Suspect]
     Route: 062
  3. DURAGESIC-100 [Suspect]
     Route: 062
  4. FENTANYL [Suspect]
     Indication: NECK PAIN
     Route: 062
  5. TOPROL-XL [Concomitant]
     Indication: MITRAL VALVE PROLAPSE
     Route: 048
  6. VITAMIN [Concomitant]
     Indication: GENERAL PHYSICAL CONDITION
     Route: 048

REACTIONS (4)
  - DRUG EFFECT INCREASED [None]
  - INSOMNIA [None]
  - NAUSEA [None]
  - OSTEOPOROSIS [None]
